FAERS Safety Report 16090290 (Version 2)
Quarter: 2019Q3

REPORT INFORMATION
  Report Type: Spontaneous
  Country: US (occurrence: US)
  Receive Date: 20190319
  Receipt Date: 20190923
  Transmission Date: 20191004
  Serious: Yes (Life-Threatening, Hospitalization, Other)
  Sender: FDA-Public Use
  Company Number: US-SA-2019SA070039

PATIENT
  Age: 61 Year
  Sex: Female
  Weight: 71 kg

DRUGS (23)
  1. PROVIGIL [Concomitant]
     Active Substance: MODAFINIL
     Indication: HYPERSOMNIA
     Dosage: 1 DF, QD
     Route: 048
  2. CALCIUM/VITAMIN D3 [Concomitant]
     Dosage: 3 DF, BID
     Route: 048
  3. PRESERVISION AREDS [Concomitant]
     Active Substance: MINERALS\VITAMINS
     Dosage: 1 DF, BID
     Route: 048
  4. COENZYME Q10 [Concomitant]
     Active Substance: UBIDECARENONE
     Dosage: 1 DF, QD
     Route: 048
  5. FISH OIL CONCENTRATE [Concomitant]
     Active Substance: FISH OIL
     Dosage: 1 DF, BID
     Route: 048
  6. PROBIOTICS NOS [Concomitant]
     Active Substance: PROBIOTICS NOS
     Dosage: 1 DF, QD
     Route: 048
  7. VITAMIN D3 [Concomitant]
     Active Substance: CHOLECALCIFEROL
     Dosage: 2 DF, QD
     Route: 048
  8. GARLIC ODOURLESS [Concomitant]
     Dosage: 1 DF, BID
  9. AUBAGIO [Suspect]
     Active Substance: TERIFLUNOMIDE
     Indication: MULTIPLE SCLEROSIS
     Dosage: 14 MG, QD
     Route: 048
     Dates: start: 201412, end: 201808
  10. VITAMINS NOS [Concomitant]
     Active Substance: VITAMINS
  11. ZYRTEC [Concomitant]
     Active Substance: CETIRIZINE HYDROCHLORIDE
     Dosage: 1 DF, QD
     Route: 048
  12. AMANTADINE. [Concomitant]
     Active Substance: AMANTADINE HYDROCHLORIDE
  13. VITAMIN D [VITAMIN D NOS] [Concomitant]
     Active Substance: VITAMIN D NOS
     Dosage: 2 DF, QD
  14. VITAMIN K [PHYTOMENADIONE] [Concomitant]
     Dosage: UNK UNK, QD
  15. VITAMIN C ACID [Concomitant]
     Active Substance: ASCORBIC ACID
     Dosage: 500 MG, QD
     Route: 048
  16. PRAVACHOL [Concomitant]
     Active Substance: PRAVASTATIN SODIUM
     Indication: HYPERLIPIDAEMIA
     Dosage: 1 DF, QD
     Route: 048
     Dates: start: 2009
  17. FEXOFENADINE [Concomitant]
     Active Substance: FEXOFENADINE HYDROCHLORIDE
     Indication: HYPERSENSITIVITY
     Dosage: UNK UNK, QD
     Route: 048
     Dates: start: 2014, end: 20190128
  18. ZINC [ARACHIS HYPOGAEA OIL;OLEIC ACID;WOOL FAT;ZINC OXIDE] [Concomitant]
     Dosage: UNK UNK, QD
     Route: 048
  19. PROVIGIL [Concomitant]
     Active Substance: MODAFINIL
     Indication: FATIGUE
     Dosage: 1 DF, BID
     Route: 048
     Dates: start: 2009, end: 20190917
  20. BIOTIN [Concomitant]
     Active Substance: BIOTIN
     Dosage: 1 DF, TID
     Route: 048
  21. WOMEN MULTI [Concomitant]
     Dosage: UNK UNK, QD
  22. DIOVAN HCT [Concomitant]
     Active Substance: HYDROCHLOROTHIAZIDE\VALSARTAN
     Indication: HYPERTENSION
     Dosage: 1 DF, QD, 160/25MG
     Route: 048
     Dates: start: 2012
  23. ALPHA LIPOIC ACID [Concomitant]
     Active Substance: .ALPHA.-LIPOIC ACID
     Indication: MULTIPLE SCLEROSIS
     Dosage: 2 DF, QD

REACTIONS (6)
  - Early satiety [Unknown]
  - Abdominal distension [Unknown]
  - Metastases to peritoneum [Unknown]
  - Drug ineffective [Unknown]
  - Adenocarcinoma [Unknown]
  - Constipation [Unknown]

NARRATIVE: CASE EVENT DATE: 20190217
